FAERS Safety Report 19869262 (Version 1)
Quarter: 2021Q3

REPORT INFORMATION
  Report Type: Spontaneous
  Country: CA (occurrence: CA)
  Receive Date: 20210922
  Receipt Date: 20210922
  Transmission Date: 20211014
  Serious: Yes (Hospitalization, Other)
  Sender: FDA-Public Use
  Company Number: CA-BAYER-2021-211120

PATIENT
  Age: 71 Year
  Sex: Male

DRUGS (3)
  1. PIPERACILLIN AND TAZOBACTAM [Suspect]
     Active Substance: PIPERACILLIN SODIUM\TAZOBACTAM SODIUM
     Indication: PSEUDOMONAS TEST POSITIVE
     Dosage: UNK
  2. CIPROFLOXACIN. [Suspect]
     Active Substance: CIPROFLOXACIN
     Indication: PSEUDOMONAS TEST POSITIVE
     Dosage: UNK
  3. CILASTATIN SODIUM;IMIPENEM [Suspect]
     Active Substance: CILASTATIN SODIUM\IMIPENEM
     Indication: PSEUDOMONAS TEST POSITIVE
     Dosage: UNK

REACTIONS (5)
  - White blood cell count increased [Unknown]
  - Sputum purulent [Unknown]
  - Oxygen consumption increased [Unknown]
  - Antimicrobial susceptibility test resistant [Unknown]
  - Increased bronchial secretion [Unknown]
